FAERS Safety Report 23446472 (Version 6)
Quarter: 2025Q2

REPORT INFORMATION
  Report Type: Spontaneous
  Country: CN (occurrence: CN)
  Receive Date: 20240126
  Receipt Date: 20250509
  Transmission Date: 20250717
  Serious: Yes (Hospitalization, Other)
  Sender: BAYER HEALTHCARE PHARMACEUTICALS INC.
  Company Number: CN-BAYER-2024A012101

PATIENT
  Age: 27 Year
  Sex: Female

DRUGS (2)
  1. YAZ [Suspect]
     Active Substance: DROSPIRENONE\ETHINYL ESTRADIOL
     Indication: Endometrial disorder
     Dosage: 1 DF, QD; 15-16 TABLETS OF YAZ IN TOTAL
     Route: 048
     Dates: start: 20170908, end: 201709
  2. YAZ [Suspect]
     Active Substance: DROSPIRENONE\ETHINYL ESTRADIOL
     Indication: Reproductive system disorder prophylaxis

REACTIONS (21)
  - Deep vein thrombosis [None]
  - Abdominal pain [None]
  - Diabetic ketosis [None]
  - Pulmonary embolism [None]
  - Neoplasm malignant [None]
  - Abdominal pain upper [Recovered/Resolved]
  - Janus kinase 2 mutation [None]
  - Varicose veins pelvic [None]
  - Hypersomnia [None]
  - Insomnia [Recovered/Resolved]
  - Decreased appetite [Recovered/Resolved]
  - Fluid intake reduced [Recovered/Resolved]
  - Blood disorder [None]
  - Dizziness exertional [None]
  - Visual impairment [None]
  - Contraindicated product administered [None]
  - Labelled drug-disease interaction issue [None]
  - Contraindicated product prescribed [None]
  - Product prescribing issue [None]
  - Product use in unapproved indication [None]
  - Suspected counterfeit product [None]

NARRATIVE: CASE EVENT DATE: 20170101
